FAERS Safety Report 8272723-8 (Version None)
Quarter: 2012Q2

REPORT INFORMATION
  Report Type: 
  Country: None (occurrence: None)
  Receive Date: 20120411
  Receipt Date: 20120328
  Transmission Date: 20120825
  Serious: Yes (Disabling, Other)
  Sender: FDA-Public Use
  Company Number: AU-BAXTER-2012BH005311

PATIENT
  Sex: Male

DRUGS (3)
  1. KIOVIG [Suspect]
     Indication: PRIMARY IMMUNODEFICIENCY SYNDROME
     Route: 042
     Dates: start: 20120130, end: 20120130
  2. MESTINON [Concomitant]
     Indication: MYASTHENIA GRAVIS
     Route: 048
  3. IMURAN [Concomitant]
     Indication: MYASTHENIA GRAVIS
     Route: 048

REACTIONS (4)
  - VISION BLURRED [None]
  - MENINGITIS ASEPTIC [None]
  - NAUSEA [None]
  - HEADACHE [None]
